FAERS Safety Report 9206292 (Version 1)
Quarter: 2013Q2

REPORT INFORMATION
  Report Type: Spontaneous
  Country: HR (occurrence: HR)
  Receive Date: 20130403
  Receipt Date: 20130403
  Transmission Date: 20140414
  Serious: Yes (Other)
  Sender: FDA-Public Use
  Company Number: PHHY2013HR031020

PATIENT
  Age: 55 Year
  Sex: Male
  Weight: 85 kg

DRUGS (8)
  1. ZOMETA [Suspect]
     Indication: METASTASES TO BONE
     Dosage: 4 MG, PER 5 ML ONCE PER 3 WEEKS
     Route: 042
     Dates: start: 20110907, end: 20130108
  2. TAXOTERE [Interacting]
     Indication: METASTASES TO BONE
     Dosage: 75 MG/M2, EVERY THREE WEEKS
     Route: 042
     Dates: start: 20110907, end: 20121218
  3. DECORTIN [Interacting]
     Indication: METASTASES TO BONE
     Dosage: 5 MG, BID
     Route: 048
     Dates: start: 20110907
  4. SOLU MEDROL [Suspect]
     Indication: METASTASES TO BONE
     Dosage: 40 MG, BID
     Route: 042
     Dates: start: 20110907
  5. PLIVIT D3 [Concomitant]
     Indication: PROSTATE CANCER
     Dosage: 4 GTT, DAILY
     Route: 048
     Dates: start: 20110907
  6. KALCIJEV KARBONAT [Concomitant]
     Indication: PROSTATE CANCER
     Dosage: 1000 MG, DAILY
     Route: 048
     Dates: start: 20110907
  7. REGLAN [Concomitant]
     Indication: NAUSEA
     Dosage: UNK UKN, UNK
     Dates: start: 201109
  8. PEPTORAN [Concomitant]
     Indication: NAUSEA
     Dosage: UNK UKN, UNK
     Dates: start: 201109

REACTIONS (4)
  - Osteonecrosis of jaw [Not Recovered/Not Resolved]
  - Exposed bone in jaw [Not Recovered/Not Resolved]
  - Oral disorder [Not Recovered/Not Resolved]
  - Potentiating drug interaction [Not Recovered/Not Resolved]
